FAERS Safety Report 8133854-6 (Version None)
Quarter: 2012Q1

REPORT INFORMATION
  Report Type: 
  Country: None (occurrence: None)
  Receive Date: 20120213
  Receipt Date: 20120208
  Transmission Date: 20120608
  Serious: Yes (Death, Hospitalization)
  Sender: FDA-Public Use
  Company Number: FR-MERCK-1202FRA00044

PATIENT
  Age: 60 Year
  Sex: Female

DRUGS (5)
  1. PRISTINAMYCIN [Suspect]
     Indication: ERYSIPELAS
     Route: 048
  2. ACETAMINOPHEN [Concomitant]
     Route: 048
     Dates: start: 20110801
  3. IRBESARTAN [Concomitant]
     Route: 048
  4. DILTIAZEM HYDROCHLORIDE [Concomitant]
     Route: 048
  5. STROMECTOL [Suspect]
     Indication: SCAB
     Route: 048
     Dates: start: 20110802, end: 20110803

REACTIONS (3)
  - SEPTIC SHOCK [None]
  - NEUTROPENIA [None]
  - LUNG DISORDER [None]
